FAERS Safety Report 19304376 (Version 2)
Quarter: 2022Q1

REPORT INFORMATION
  Report Type: Spontaneous
  Country: JP (occurrence: JP)
  Receive Date: 20210526
  Receipt Date: 20220210
  Transmission Date: 20220423
  Serious: Yes (Hospitalization)
  Sender: FDA-Public Use
  Company Number: JP-UCBJ-CD202104584UCBPHAPROD

PATIENT
  Age: 69 Year
  Sex: Female

DRUGS (2)
  1. CIMZIA [Suspect]
     Active Substance: CERTOLIZUMAB PEGOL
     Indication: Rheumatoid arthritis
     Dosage: 200 MILLIGRAM, EV 2 WEEKS(QOW)
     Route: 058
  2. METHOTREXATE [Suspect]
     Active Substance: METHOTREXATE
     Indication: Product used for unknown indication
     Dosage: 8 MILLIGRAM, WEEKLY (QW)
     Route: 048

REACTIONS (1)
  - Salivary gland cancer [Unknown]
